FAERS Safety Report 25434854 (Version 1)
Quarter: 2025Q2

REPORT INFORMATION
  Report Type: Spontaneous
  Country: TR (occurrence: TR)
  Receive Date: 20250613
  Receipt Date: 20250613
  Transmission Date: 20250717
  Serious: Yes (Death, Other)
  Sender: ADMA BIOLOGICS
  Company Number: TR-ADMA BIOLOGICS INC.-TR-2025ADM000184

PATIENT
  Sex: Female
  Weight: 2.435 kg

DRUGS (2)
  1. HUMAN IMMUNOGLOBULIN G [Suspect]
     Active Substance: HUMAN IMMUNOGLOBULIN G
     Indication: Haemolytic anaemia
     Route: 042
  2. HUMAN IMMUNOGLOBULIN G [Suspect]
     Active Substance: HUMAN IMMUNOGLOBULIN G
     Indication: Hyperbilirubinaemia

REACTIONS (4)
  - Necrotising enterocolitis neonatal [Fatal]
  - Pneumatosis intestinalis [Fatal]
  - Intestinal perforation [Unknown]
  - Off label use [Unknown]
